FAERS Safety Report 21917417 (Version 4)
Quarter: 2024Q1

REPORT INFORMATION
  Report Type: Spontaneous
  Country: US (occurrence: US)
  Receive Date: 20230126
  Receipt Date: 20240208
  Transmission Date: 20240410
  Serious: Yes (Other)
  Sender: FDA-Public Use
  Company Number: US-BoehringerIngelheim-2023-BI-215047

PATIENT
  Age: 62 Year
  Sex: Male

DRUGS (1)
  1. LINAGLIPTIN [Suspect]
     Active Substance: LINAGLIPTIN
     Indication: Product used for unknown indication

REACTIONS (6)
  - Pelvic fracture [Unknown]
  - Diabetes mellitus [Unknown]
  - Ligament sprain [Unknown]
  - Concussion [Unknown]
  - Fall [Unknown]
  - Skin abrasion [Unknown]

NARRATIVE: CASE EVENT DATE: 20220101
